FAERS Safety Report 7115577 (Version 2)
Quarter: 2013Q2

REPORT INFORMATION
  Report Type: Report from Study
  Country: US (occurrence: US)
  Receive Date: 20090916
  Receipt Date: 20130523
  Transmission Date: 20140414
  Serious: Yes (Death, Other)
  Sender: FDA-Public Use
  Company Number: US-RB-020324-09

PATIENT
  Sex: Male

DRUGS (3)
  1. SUBOXONE TABLET [Suspect]
     Indication: DRUG DEPENDENCE
     Route: 048
     Dates: start: 1997, end: 200905
  2. XANAX [Suspect]
     Indication: ANXIETY
     Dosage: UNKNOWN DOSING DETAILS
     Route: 065
     Dates: end: 200905
  3. SEROQUEL [Suspect]
     Indication: DEPRESSION
     Route: 065
     Dates: end: 2009

REACTIONS (2)
  - Incorrect route of drug administration [Recovered/Resolved]
  - Completed suicide [Fatal]
